FAERS Safety Report 8011425-X (Version None)
Quarter: 2011Q4

REPORT INFORMATION
  Report Type: 
  Country: None (occurrence: None)
  Receive Date: 20111228
  Receipt Date: 20111219
  Transmission Date: 20120403
  Serious: Yes (Death)
  Sender: FDA-Public Use
  Company Number: US-PFIZER INC-2011309437

PATIENT
  Age: 48 Year
  Sex: Female

DRUGS (5)
  1. ZOLPIDEM [Suspect]
     Dosage: UNK
     Route: 048
  2. ACETAMINOPHEN AND HYDROCODONE BITARTRATE [Suspect]
     Dosage: UNK
     Route: 048
  3. CARISOPRODOL [Suspect]
     Dosage: UNK
     Route: 048
  4. GABAPENTIN [Suspect]
     Dosage: UNK
     Route: 048
  5. ONDANSETRON [Suspect]
     Dosage: UNK

REACTIONS (1)
  - DEATH [None]
